FAERS Safety Report 16280096 (Version 2)
Quarter: 2019Q2

REPORT INFORMATION
  Report Type: Report from Study
  Country: US (occurrence: US)
  Receive Date: 20190507
  Receipt Date: 20190531
  Transmission Date: 20190711
  Serious: Yes (Other)
  Sender: FDA-Public Use
  Company Number: US-ROCHE-2312359

PATIENT
  Age: 65 Year
  Sex: Female
  Weight: 49.94 kg

DRUGS (4)
  1. OCREVUS [Suspect]
     Active Substance: OCRELIZUMAB
     Indication: PROGRESSIVE MULTIPLE SCLEROSIS
     Route: 065
     Dates: start: 201711
  2. PRIMIDONE. [Concomitant]
     Active Substance: PRIMIDONE
  3. GABAPENTIN. [Concomitant]
     Active Substance: GABAPENTIN
  4. OCREVUS [Suspect]
     Active Substance: OCRELIZUMAB
     Route: 065
     Dates: start: 201805

REACTIONS (2)
  - Ear pain [Unknown]
  - Herpes zoster [Not Recovered/Not Resolved]

NARRATIVE: CASE EVENT DATE: 20190413
